FAERS Safety Report 9999733 (Version 1)
Quarter: 2014Q1

REPORT INFORMATION
  Report Type: Spontaneous
  Country: GB (occurrence: GB)
  Receive Date: 20140312
  Receipt Date: 20140312
  Transmission Date: 20141002
  Serious: Yes (Other)
  Sender: FDA-Public Use
  Company Number: GB-ASTRAZENECA-2014SE15120

PATIENT
  Sex: Female

DRUGS (1)
  1. DIPRIVAN [Suspect]
     Indication: ANAESTHESIA
     Route: 042

REACTIONS (3)
  - Adverse drug reaction [Not Recovered/Not Resolved]
  - Apnoea [Not Recovered/Not Resolved]
  - Pruritus [Not Recovered/Not Resolved]
